FAERS Safety Report 9226279 (Version 1)
Quarter: 2013Q2

REPORT INFORMATION
  Report Type: Spontaneous
  Country: US (occurrence: US)
  Receive Date: 20130411
  Receipt Date: 20130411
  Transmission Date: 20140414
  Serious: Yes (Other)
  Sender: FDA-Public Use
  Company Number: US-B.I. PHARMACEUTICALS,INC./RIDGEFIELD-2013-BI-09524BP

PATIENT
  Age: 65 Year
  Sex: Male

DRUGS (6)
  1. PERSANTIN [Suspect]
     Route: 048
  2. XARELTO [Suspect]
     Indication: THROMBOSIS PROPHYLAXIS
     Route: 048
     Dates: start: 20130111, end: 20130116
  3. ACETYLSALICYLIC ACID [Suspect]
  4. CHOLESTEROL MEDICATIONS [Concomitant]
  5. BLOOD PRESSURE MEDICATIONS [Concomitant]
  6. UNSPECIFIED MEDICATIONS [Concomitant]

REACTIONS (5)
  - Injection site haemorrhage [Recovered/Resolved]
  - Abdominal discomfort [Recovered/Resolved]
  - Vomiting [Recovered/Resolved]
  - Weight increased [Recovered/Resolved]
  - Retching [Recovered/Resolved]
